FAERS Safety Report 10172120 (Version 1)
Quarter: 2014Q2

REPORT INFORMATION
  Report Type: Spontaneous
  Country: CA (occurrence: CA)
  Receive Date: 20140515
  Receipt Date: 20140515
  Transmission Date: 20141212
  Serious: Yes (Life-Threatening, Other)
  Sender: FDA-Public Use
  Company Number: CA-009507513-1405CAN003654

PATIENT
  Age: 20 Year
  Sex: Female
  Weight: 106 kg

DRUGS (1)
  1. NUVARING [Suspect]
     Dosage: CYCLICAL
     Route: 067

REACTIONS (3)
  - Dyspnoea [Unknown]
  - Pulmonary embolism [Unknown]
  - Chest pain [Unknown]
